FAERS Safety Report 14564569 (Version 9)
Quarter: 2019Q2

REPORT INFORMATION
  Report Type: Report from Study
  Country: DE (occurrence: DE)
  Receive Date: 20180222
  Receipt Date: 20190425
  Transmission Date: 20190711
  Serious: Yes (Hospitalization, Other)
  Sender: FDA-Public Use
  Company Number: DE-BRISTOL-MYERS SQUIBB COMPANY-BMS-2017-121065

PATIENT
  Age: 38 Year
  Sex: Male
  Weight: 90 kg

DRUGS (5)
  1. NIVOLUMAB [Suspect]
     Active Substance: NIVOLUMAB
     Indication: MALIGNANT MELANOMA
     Dosage: 1 DF=90 UNITS NOS, Q3WK
     Route: 065
     Dates: start: 20170810, end: 20170831
  2. NIVOLUMAB [Suspect]
     Active Substance: NIVOLUMAB
     Indication: LUNG NEOPLASM MALIGNANT
     Dosage: 1 DF=91 UNITS NOS, Q3WK
     Route: 065
     Dates: start: 20170925, end: 20170925
  3. FORTECORTIN                        /00016001/ [Concomitant]
     Active Substance: DEXAMETHASONE
     Indication: PRODUCT USED FOR UNKNOWN INDICATION
     Dosage: 16 MG, QD
     Route: 048
     Dates: start: 20170923
  4. IPILIMUMAB [Suspect]
     Active Substance: IPILIMUMAB
     Indication: LUNG NEOPLASM MALIGNANT
     Dosage: 1 DF=273 UNITS NOS, Q3WK
     Route: 065
     Dates: start: 20170925, end: 20170925
  5. IPILIMUMAB [Suspect]
     Active Substance: IPILIMUMAB
     Indication: MALIGNANT MELANOMA
     Dosage: 1 DF=270 UNITS NOS, Q3WK
     Route: 065
     Dates: start: 20170810, end: 20170831

REACTIONS (10)
  - Pneumonia [Recovered/Resolved]
  - Diabetes mellitus [Unknown]
  - Pneumonia legionella [Unknown]
  - Autoimmune hepatitis [Not Recovered/Not Resolved]
  - Cytomegalovirus infection [Unknown]
  - Hypothyroidism [Unknown]
  - Nausea [Unknown]
  - Pyrexia [Unknown]
  - Decreased appetite [Unknown]
  - Constipation [Unknown]

NARRATIVE: CASE EVENT DATE: 20171005
